FAERS Safety Report 25067032 (Version 2)
Quarter: 2025Q2

REPORT INFORMATION
  Report Type: Spontaneous
  Country: FR (occurrence: FR)
  Receive Date: 20250312
  Receipt Date: 20250410
  Transmission Date: 20250716
  Serious: Yes (Other)
  Sender: ASTELLAS
  Company Number: FR-009507513-2259491

PATIENT
  Age: 76 Year
  Sex: Male

DRUGS (2)
  1. PADCEV [Suspect]
     Active Substance: ENFORTUMAB VEDOTIN-EJFV
     Indication: Transitional cell carcinoma metastatic
     Route: 065
  2. KEYTRUDA [Suspect]
     Active Substance: PEMBROLIZUMAB
     Indication: Transitional cell carcinoma metastatic
     Dosage: 200 MG EVERY 3 WEEKS
     Route: 065

REACTIONS (5)
  - Leukopenia [Unknown]
  - Neutropenia [Recovering/Resolving]
  - Fatigue [Unknown]
  - Cough [Unknown]
  - Toxicity to various agents [Unknown]
